FAERS Safety Report 20190167 (Version 2)
Quarter: 2022Q1

REPORT INFORMATION
  Report Type: Report from Study
  Country: DK (occurrence: DK)
  Receive Date: 20211215
  Receipt Date: 20220119
  Transmission Date: 20220423
  Serious: Yes (Hospitalization)
  Sender: FDA-Public Use
  Company Number: DK-ABBVIE-21P-044-4189242-00

PATIENT
  Age: 54 Year
  Sex: Male
  Weight: 88.1 kg

DRUGS (26)
  1. VENETOCLAX [Suspect]
     Active Substance: VENETOCLAX
     Indication: Plasma cell myeloma
     Route: 048
     Dates: start: 20200720, end: 20211207
  2. VENETOCLAX [Suspect]
     Active Substance: VENETOCLAX
     Route: 048
     Dates: start: 20211214
  3. DARATUMUMAB [Suspect]
     Active Substance: DARATUMUMAB
     Indication: Plasma cell myeloma
     Dosage: DAYS 1, 8, 15, AND 22, CYCLES 1 - 2; CYCLE = 28 DAYS
     Route: 058
     Dates: start: 20200720, end: 20200907
  4. DARATUMUMAB [Suspect]
     Active Substance: DARATUMUMAB
     Dosage: DAYS 1 AND 15 OF EACH CYCLE, CYCLES 3 - 6; CYCLE = 28 DAYS
     Route: 058
     Dates: start: 20200915, end: 20201222
  5. DARATUMUMAB [Suspect]
     Active Substance: DARATUMUMAB
     Dosage: DAY 1 OF EACH CYCLE, CYCLES 7+; CYCLE = 28 DAYS
     Route: 058
     Dates: start: 20210105, end: 20211109
  6. DARATUMUMAB [Suspect]
     Active Substance: DARATUMUMAB
     Dosage: DAY 1 OF EACH CYCLE, CYCLES 7+; CYCLE = 28 DAYS
     Route: 058
     Dates: start: 20211214
  7. DEXAMETHASONE [Suspect]
     Active Substance: DEXAMETHASONE
     Indication: Plasma cell myeloma
     Dosage: CYCLE 1 DAY 1
     Route: 042
     Dates: start: 20200720, end: 20200720
  8. DEXAMETHASONE [Suspect]
     Active Substance: DEXAMETHASONE
     Route: 048
     Dates: start: 20200727, end: 20211207
  9. DEXAMETHASONE [Suspect]
     Active Substance: DEXAMETHASONE
     Route: 048
     Dates: start: 20211214
  10. UNIKALK SILVER [Concomitant]
     Indication: Vitamin supplementation
     Dates: start: 20151215
  11. UNIKALK SILVER [Concomitant]
     Indication: Mineral supplementation
  12. CETIRIZINE HYDROCHLORIDE [Concomitant]
     Active Substance: CETIRIZINE HYDROCHLORIDE
     Indication: Allergy prophylaxis
     Dates: start: 20160919
  13. BRICANYL [Concomitant]
     Active Substance: TERBUTALINE SULFATE
     Indication: Bronchospasm
     Route: 055
     Dates: start: 20170227
  14. OLOPATADINE [Concomitant]
     Active Substance: OLOPATADINE
     Indication: Prophylaxis
     Dates: start: 20180320
  15. FLUTICASONE FUROATE [Concomitant]
     Active Substance: FLUTICASONE FUROATE
     Indication: Rhinitis prophylaxis
     Dates: start: 20180320
  16. ACYCLOVIR [Concomitant]
     Active Substance: ACYCLOVIR
     Indication: Antibiotic prophylaxis
     Route: 048
     Dates: start: 20190115
  17. SULFAMETHOXAZOL AND TRIMETHOPRIM [Concomitant]
     Indication: Antibiotic prophylaxis
     Dosage: 400 + 80 MG
     Route: 048
     Dates: start: 20200720
  18. SILDENAFIL [Concomitant]
     Active Substance: SILDENAFIL
     Indication: Erectile dysfunction
     Route: 048
     Dates: start: 20200831
  19. ZOPICLONE [Concomitant]
     Active Substance: ZOPICLONE
     Indication: Insomnia
     Route: 048
     Dates: start: 20201208
  20. MELATONIN [Concomitant]
     Active Substance: MELATONIN
     Indication: Sleep disorder
     Route: 048
     Dates: start: 20201208
  21. CLEMASTINE [Concomitant]
     Active Substance: CLEMASTINE
     Indication: Premedication
     Route: 048
     Dates: start: 20200720
  22. ACETAMINOPHEN [Concomitant]
     Active Substance: ACETAMINOPHEN
     Indication: Premedication
     Route: 048
     Dates: start: 20210827
  23. ACETAMINOPHEN [Concomitant]
     Active Substance: ACETAMINOPHEN
     Route: 048
     Dates: start: 20200720
  24. IBUPROFEN [Concomitant]
     Active Substance: IBUPROFEN
     Indication: Fracture pain
     Route: 048
     Dates: start: 20210831
  25. MONTELUKAST SODIUM [Concomitant]
     Active Substance: MONTELUKAST SODIUM
     Indication: Premedication
     Route: 048
     Dates: start: 20200720
  26. COLGATE DURAPHAT [Concomitant]
     Active Substance: SODIUM FLUORIDE
     Indication: Premedication
     Route: 048
     Dates: start: 20210209

REACTIONS (1)
  - Upper respiratory tract infection [Recovered/Resolved]

NARRATIVE: CASE EVENT DATE: 20211205
